FAERS Safety Report 13433384 (Version 1)
Quarter: 2017Q2

REPORT INFORMATION
  Report Type: Spontaneous
  Country: GR (occurrence: GR)
  Receive Date: 20170412
  Receipt Date: 20170412
  Transmission Date: 20170830
  Serious: Yes (Other)
  Sender: FDA-Public Use
  Company Number: GR-JNJFOC-20141105852

PATIENT
  Age: 36 Month
  Sex: Male

DRUGS (2)
  1. ZIPTEK [Suspect]
     Active Substance: CETIRIZINE HYDROCHLORIDE
     Indication: NASAL CONGESTION
     Route: 048
  2. ZIPTEK [Suspect]
     Active Substance: CETIRIZINE HYDROCHLORIDE
     Indication: VIRAL INFECTION
     Route: 048

REACTIONS (3)
  - Intentional product misuse [Unknown]
  - Loss of consciousness [Recovered/Resolved]
  - Product use in unapproved indication [Unknown]

NARRATIVE: CASE EVENT DATE: 201410
